FAERS Safety Report 7706948-4 (Version None)
Quarter: 2011Q3

REPORT INFORMATION
  Report Type: 
  Country: None (occurrence: None)
  Receive Date: 20110824
  Receipt Date: 20110822
  Transmission Date: 20111222
  Serious: Yes (Death)
  Sender: FDA-Public Use
  Company Number: NO-GLAXOSMITHKLINE-B0741644A

PATIENT
  Sex: Male

DRUGS (1)
  1. ZINACEF [Suspect]
     Indication: PNEUMONIA
     Dosage: 1.5G THREE TIMES PER DAY
     Route: 042
     Dates: start: 20110708, end: 20110715

REACTIONS (5)
  - RESPIRATORY FAILURE [None]
  - HEPATIC FAILURE [None]
  - CLOSTRIDIAL INFECTION [None]
  - PANCREATITIS [None]
  - GENERAL PHYSICAL HEALTH DETERIORATION [None]
